FAERS Safety Report 4743375-6 (Version None)
Quarter: 2005Q3

REPORT INFORMATION
  Report Type: 
  Country: None (occurrence: None)
  Receive Date: 20050809
  Receipt Date: 20050727
  Transmission Date: 20060218
  Serious: Yes (Death)
  Sender: FDA-Public Use
  Company Number: 2005BI008184

PATIENT
  Age: 74 Year
  Sex: Female

DRUGS (7)
  1. AVONEX [Suspect]
     Indication: MULTIPLE SCLEROSIS
     Dosage: 30 UG QW IM
     Route: 030
     Dates: start: 19970805, end: 20030819
  2. AVONEX [Suspect]
     Indication: MULTIPLE SCLEROSIS
     Dosage: 30 UG QW IM
     Route: 030
     Dates: start: 20030827
  3. ZOLOFT [Concomitant]
  4. PROTONIX [Concomitant]
  5. ARICEPT [Concomitant]
  6. ZOCOR [Concomitant]
  7. ALPRAZOLAM [Concomitant]

REACTIONS (3)
  - DYSPHAGIA [None]
  - NEOPLASM MALIGNANT [None]
  - QUADRIPLEGIA [None]
